FAERS Safety Report 6232142-2 (Version None)
Quarter: 2009Q2

REPORT INFORMATION
  Report Type: 
  Country: None (occurrence: None)
  Receive Date: 20090617
  Receipt Date: 20071121
  Transmission Date: 20091009
  Serious: Yes (Other)
  Sender: FDA-Public Use
  Company Number: US-ASTRAZENECA-2006UW10190

PATIENT
  Age: 34 Year
  Sex: Female
  Weight: 92.5 kg

DRUGS (7)
  1. SEROQUEL [Suspect]
     Indication: SLEEP DISORDER
     Route: 048
     Dates: start: 20040305
  2. SEROQUEL [Suspect]
     Route: 048
     Dates: start: 20060912
  3. LORAZEPAM [Concomitant]
     Dosage: 1 MG TAKE AS DIRECTED
     Dates: start: 20040216
  4. LISINOPRIL [Concomitant]
     Dates: start: 20040317
  5. TOPROL-XL [Concomitant]
     Route: 048
     Dates: start: 20040401
  6. EFFEXOR XR [Concomitant]
     Route: 048
     Dates: start: 20040610
  7. KLONOPIN [Concomitant]
     Dates: start: 20040610

REACTIONS (2)
  - DIABETES MELLITUS [None]
  - DIABETIC NEUROPATHY [None]
